FAERS Safety Report 8917552 (Version 3)
Quarter: 2013Q3

REPORT INFORMATION
  Report Type: Report from Study
  Country: FR (occurrence: FR)
  Receive Date: 20121120
  Receipt Date: 20130719
  Transmission Date: 20140515
  Serious: Yes (Hospitalization, Other)
  Sender: FDA-Public Use
  Company Number: FR-GENZYME-MOZO-1000778

PATIENT
  Age: 51 Year
  Sex: Male
  Weight: 80 kg

DRUGS (14)
  1. MOZOBIL [Suspect]
     Indication: ACUTE MYELOID LEUKAEMIA RECURRENT
     Dosage: 240 MCG/KG, QD, D1-D3,D8-D10
     Route: 041
     Dates: start: 20120924, end: 20121003
  2. GRANOCYTE [Suspect]
     Indication: ACUTE MYELOID LEUKAEMIA RECURRENT
     Dosage: 5 MCG/KG, QD, D1-D10
     Route: 041
     Dates: start: 20120924, end: 20121003
  3. DAUNORUBICIN [Suspect]
     Indication: PRODUCT USED FOR UNKNOWN INDICATION
     Dosage: 60 MG/M2, QD (D1-D3)
     Route: 042
     Dates: start: 20120924, end: 20120926
  4. ARACYTINE [Suspect]
     Indication: PRODUCT USED FOR UNKNOWN INDICATION
     Dosage: 500 MG/M2, QD, D1-D3
     Route: 042
     Dates: start: 20120924
  5. ARACYTINE [Suspect]
     Dosage: 1000 MG/M2, QD, D8-D10
     Route: 042
     Dates: end: 20121003
  6. BUSULFAN [Concomitant]
     Indication: BONE MARROW CONDITIONING REGIMEN
     Dosage: 6.4 MG, UNK
     Route: 065
  7. FLUDARABINE [Concomitant]
     Indication: BONE MARROW CONDITIONING REGIMEN
     Dosage: 150 MG/M2, UNK
     Route: 065
  8. THYMOGLOBULINE [Concomitant]
     Indication: BONE MARROW CONDITIONING REGIMEN
     Dosage: 10 MG/KG, UNK
     Route: 065
  9. CYCLOSPORIN [Concomitant]
     Indication: PROPHYLAXIS AGAINST TRANSPLANT REJECTION
     Dosage: UNK
     Route: 065
  10. CELLCEPT [Concomitant]
     Indication: PROPHYLAXIS AGAINST TRANSPLANT REJECTION
     Dosage: UNK
     Route: 065
  11. BACTRIM [Concomitant]
     Indication: PRODUCT USED FOR UNKNOWN INDICATION
     Dosage: UNK
     Route: 065
  12. CANCIDAS [Concomitant]
     Indication: PRODUCT USED FOR UNKNOWN INDICATION
     Dosage: UNK
     Route: 065
  13. ZEFFIX [Concomitant]
     Indication: PRODUCT USED FOR UNKNOWN INDICATION
     Dosage: UNK
     Route: 065
  14. CEFAZOLIN [Concomitant]
     Indication: PRODUCT USED FOR UNKNOWN INDICATION
     Dosage: UNK
     Route: 065

REACTIONS (15)
  - Bronchopulmonary aspergillosis [Recovered/Resolved with Sequelae]
  - Febrile bone marrow aplasia [Recovered/Resolved]
  - Spleen disorder [Unknown]
  - Pulmonary haemorrhage [Unknown]
  - Pericardial effusion [Unknown]
  - Pneumonia [Unknown]
  - Hepatic mass [Unknown]
  - Metapneumovirus infection [Unknown]
  - Graft versus host disease in skin [Not Recovered/Not Resolved]
  - Toxoplasmosis [Unknown]
  - Rectal haemorrhage [Unknown]
  - Adenovirus infection [Unknown]
  - Acute graft versus host disease [Not Recovered/Not Resolved]
  - Myalgia [Unknown]
  - Rash [Unknown]
